FAERS Safety Report 4689118-6 (Version None)
Quarter: 2005Q2

REPORT INFORMATION
  Report Type: 
  Country: None (occurrence: None)
  Receive Date: 20050613
  Receipt Date: 20050602
  Transmission Date: 20051028
  Serious: Yes (Hospitalization)
  Sender: FDA-Public Use
  Company Number: 2005AP03174

PATIENT
  Age: 72 Year
  Sex: Female

DRUGS (9)
  1. ATENOLOL [Suspect]
     Indication: ILL-DEFINED DISORDER
     Route: 048
     Dates: end: 20041223
  2. ACETYLSALICYLIC ACID [Suspect]
     Indication: ILL-DEFINED DISORDER
     Route: 048
     Dates: start: 20040615
  3. CANDESARTAN CILEXETIL [Suspect]
     Indication: ILL-DEFINED DISORDER
     Route: 048
     Dates: start: 20041015, end: 20041223
  4. CARDIZEM [Suspect]
     Indication: ILL-DEFINED DISORDER
     Route: 048
     Dates: end: 20041223
  5. CARDIZEM [Suspect]
     Route: 048
     Dates: start: 20041223
  6. FUROSEMIDE [Suspect]
     Indication: ILL-DEFINED DISORDER
     Route: 048
  7. THYROXINE SODIUM [Concomitant]
     Route: 048
  8. PANTOPRAZOLE [Concomitant]
     Route: 048
     Dates: start: 20040615
  9. NON-STEROIDAL ANTI-INFLAMMATORY DRUGS [Concomitant]

REACTIONS (4)
  - ATRIOVENTRICULAR BLOCK [None]
  - ATRIOVENTRICULAR BLOCK COMPLETE [None]
  - BLOOD CREATININE INCREASED [None]
  - HYPERKALAEMIA [None]
